FAERS Safety Report 17763352 (Version 3)
Quarter: 2020Q2

REPORT INFORMATION
  Report Type: Report from Study
  Country: None (occurrence: AU)
  Receive Date: 20200509
  Receipt Date: 20200520
  Transmission Date: 20200714
  Serious: Yes (Other)
  Sender: FDA-Public Use
  Company Number: AU-ABBVIE-20K-008-3395393-00

PATIENT
  Sex: Male

DRUGS (1)
  1. LUCRIN DEPOT [Suspect]
     Active Substance: LEUPROLIDE ACETATE
     Indication: PROSTATE CANCER
     Route: 030
     Dates: start: 2017, end: 201910

REACTIONS (7)
  - Osteoarthritis [Not Recovered/Not Resolved]
  - Degenerative bone disease [Not Recovered/Not Resolved]
  - Muscle disorder [Unknown]
  - Mobility decreased [Unknown]
  - Gait disturbance [Unknown]
  - Pain [Not Recovered/Not Resolved]
  - Prostate cancer metastatic [Unknown]

NARRATIVE: CASE EVENT DATE: 2018
